FAERS Safety Report 9723188 (Version 2)
Quarter: 2013Q4

REPORT INFORMATION
  Report Type: Spontaneous
  Country: CH (occurrence: None)
  Receive Date: 20131126
  Receipt Date: 20131209
  Transmission Date: 20140711
  Serious: Yes (Hospitalization)
  Sender: FDA-Public Use
  Company Number: 2013CH009837

PATIENT
  Age: 52 Year
  Sex: Male
  Weight: 80 kg

DRUGS (4)
  1. ALOXI [Suspect]
     Indication: PROPHYLAXIS OF NAUSEA AND VOMITING
     Route: 042
     Dates: start: 20131028, end: 20131028
  2. CALCIUM FOLINATE (CALCIUM FOLINATE) [Suspect]
     Dates: start: 201311
  3. FLUORACIL (FLUOROURACIL) [Concomitant]
  4. IRINOTECAN (IRINOTECAN HYDROCHLORIDE) [Concomitant]

REACTIONS (2)
  - Epilepsy [None]
  - Metastases to lung [None]
